FAERS Safety Report 21615562 (Version 2)
Quarter: 2023Q1

REPORT INFORMATION
  Report Type: Spontaneous
  Country: US (occurrence: US)
  Receive Date: 20221118
  Receipt Date: 20230308
  Transmission Date: 20230418
  Serious: No
  Sender: FDA-Public Use
  Company Number: US-G1 THERAPEUTICS-2022G1US0000227

PATIENT

DRUGS (10)
  1. COSELA [Suspect]
     Active Substance: TRILACICLIB DIHYDROCHLORIDE
     Indication: Infection prophylaxis
     Dosage: 420 MG, EVERY 21 DAYS
     Route: 042
     Dates: start: 20220907
  2. CARBOPLATIN [Concomitant]
     Active Substance: CARBOPLATIN
     Indication: Product used for unknown indication
     Dosage: 270 MG
     Route: 065
     Dates: start: 20220907, end: 20220910
  3. CARBOPLATIN [Concomitant]
     Active Substance: CARBOPLATIN
     Dosage: 270 MG
     Route: 065
     Dates: start: 20220928, end: 20220930
  4. CARBOPLATIN [Concomitant]
     Active Substance: CARBOPLATIN
     Dosage: 270 MG
     Route: 065
     Dates: start: 20221018, end: 20221020
  5. CARBOPLATIN [Concomitant]
     Active Substance: CARBOPLATIN
     Dosage: 270 MG
     Route: 065
     Dates: start: 20221108, end: 20221110
  6. ETOPOSIDE [Concomitant]
     Active Substance: ETOPOSIDE
     Indication: Small cell lung cancer
     Dosage: 130 MG
     Route: 065
     Dates: start: 20220907, end: 20220910
  7. ETOPOSIDE [Concomitant]
     Active Substance: ETOPOSIDE
     Dosage: 130 MG
     Route: 065
     Dates: start: 20220928, end: 20220930
  8. ETOPOSIDE [Concomitant]
     Active Substance: ETOPOSIDE
     Dosage: 130 MG
     Route: 065
     Dates: start: 20221018, end: 20221020
  9. ETOPOSIDE [Concomitant]
     Active Substance: ETOPOSIDE
     Dosage: 130 MG
     Route: 065
     Dates: start: 20221108, end: 20221110
  10. ZARXIO [Concomitant]
     Active Substance: FILGRASTIM-SNDZ
     Indication: Product used for unknown indication
     Dosage: 480 UG 1 DOSE POST CHEMOTHERAPY
     Dates: start: 20220928

REACTIONS (1)
  - Neutrophil count decreased [Unknown]

NARRATIVE: CASE EVENT DATE: 20220928
